FAERS Safety Report 5787058-2 (Version None)
Quarter: 2008Q2

REPORT INFORMATION
  Report Type: 
  Country: None (occurrence: None)
  Receive Date: 20080618
  Receipt Date: 20071011
  Transmission Date: 20081010
  Serious: Yes (Hospitalization, Other)
  Sender: FDA-Public Use
  Company Number: 200619175US

PATIENT
  Age: 61 Year
  Sex: Female
  Weight: 91 kg

DRUGS (8)
  1. LANTUS [Suspect]
     Indication: TYPE 2 DIABETES MELLITUS
     Dosage: 30 U QAM
     Dates: start: 20050501, end: 20061106
  2. LANTUS [Suspect]
     Indication: TYPE 2 DIABETES MELLITUS
     Dosage: 25 U QAM
     Dates: start: 20061108, end: 20061116
  3. LANTUS [Suspect]
     Indication: TYPE 2 DIABETES MELLITUS
  4. AMLODIPINE (NORVASC 00972401) [Concomitant]
  5. CLONIDINE [Concomitant]
  6. URSODIOL [Concomitant]
  7. LASIX [Concomitant]
  8. PARACETAMOL [Concomitant]

REACTIONS (9)
  - ASTHENIA [None]
  - BLOOD GLUCOSE INCREASED [None]
  - DRUG INEFFECTIVE [None]
  - HYPOGLYCAEMIC COMA [None]
  - INJECTION SITE BRUISING [None]
  - INJECTION SITE RASH [None]
  - LOSS OF CONSCIOUSNESS [None]
  - PRURITUS [None]
  - TREMOR [None]
